FAERS Safety Report 6763908-8 (Version None)
Quarter: 2010Q2

REPORT INFORMATION
  Report Type: 
  Country: None (occurrence: None)
  Receive Date: 20100608
  Receipt Date: 20100526
  Transmission Date: 20101027
  Serious: No
  Sender: FDA-Public Use
  Company Number: LIT-10-0034-W

PATIENT

DRUGS (1)
  1. DIVALPROEX EXTENDED-RELEASE [Suspect]
     Indication: MANIA
     Dosage: 047

REACTIONS (2)
  - DEPRESSION [None]
  - OVERDOSE [None]
